FAERS Safety Report 23384645 (Version 1)
Quarter: 2024Q1

REPORT INFORMATION
  Report Type: Spontaneous
  Country: US (occurrence: US)
  Receive Date: 20240109
  Receipt Date: 20240109
  Transmission Date: 20240409
  Serious: No
  Sender: FDA-Public Use
  Company Number: US-PFIZER INC-PV202300197292

PATIENT
  Age: 59 Year
  Sex: Male

DRUGS (2)
  1. INLYTA [Suspect]
     Active Substance: AXITINIB
     Dosage: 5MG TWICE DAILY
  2. INLYTA [Suspect]
     Active Substance: AXITINIB
     Dosage: 7MG TWICE DAILY

REACTIONS (2)
  - Product dose omission issue [Unknown]
  - Nausea [Not Recovered/Not Resolved]
